FAERS Safety Report 16712540 (Version 1)
Quarter: 2019Q3

REPORT INFORMATION
  Report Type: Spontaneous
  Country: US (occurrence: US)
  Receive Date: 20190816
  Receipt Date: 20190816
  Transmission Date: 20191004
  Serious: No
  Sender: FDA-Public Use
  Company Number: US-PFIZER INC-2019342856

PATIENT
  Age: 86 Year
  Sex: Female
  Weight: 61.23 kg

DRUGS (11)
  1. LOVASTATIN. [Concomitant]
     Active Substance: LOVASTATIN
     Indication: BLOOD CHOLESTEROL ABNORMAL
     Dosage: 40 MG, 1X/DAY
     Route: 048
     Dates: start: 2017
  2. JANUMET [Concomitant]
     Active Substance: METFORMIN HYDROCHLORIDE\SITAGLIPTIN PHOSPHATE
     Indication: DIABETES MELLITUS
     Dosage: UNK UNK, 2X/DAY (50MG/1000MG TABLET, TWICE A DAY)
     Route: 048
     Dates: start: 2018
  3. PREMARIN [Suspect]
     Active Substance: ESTROGENS, CONJUGATED
     Indication: PRURITUS
     Dosage: SMALL AMOUNT TO VAGINAL AREA, TWICE A DAY
     Route: 067
     Dates: start: 201907
  4. LISINOPRIL. [Concomitant]
     Active Substance: LISINOPRIL
     Indication: BLOOD PRESSURE ABNORMAL
     Dosage: 12.5 MG, 1X/DAY
     Route: 048
     Dates: start: 2017
  5. PREMARIN [Suspect]
     Active Substance: ESTROGENS, CONJUGATED
     Indication: GENITAL HERPES
  6. CALCIUM + VITAMIN D [CALCIUM CARBONATE;COLECALCIFEROL] [Concomitant]
     Dosage: CALCIUM 600MG + VITAMIN D 800 IU, TWICE A DAY
     Route: 048
     Dates: start: 2018
  7. PREMARIN [Suspect]
     Active Substance: ESTROGENS, CONJUGATED
     Indication: SKIN BURNING SENSATION
  8. PREMARIN [Suspect]
     Active Substance: ESTROGENS, CONJUGATED
     Indication: CYSTITIS
  9. PREMARIN [Suspect]
     Active Substance: ESTROGENS, CONJUGATED
     Indication: URINARY TRACT DISORDER
  10. CRANBERRY EXTRACT [VACCINIUM MACROCARPON] [Concomitant]
     Indication: URINARY TRACT INFECTION
     Dosage: 500 MG, 1X/DAY
     Route: 048
     Dates: start: 2016
  11. GLIPIZIDE. [Concomitant]
     Active Substance: GLIPIZIDE
     Indication: DIABETES MELLITUS
     Dosage: 5 MG, 3X/DAY (5MG TABLETS, TWO TABLETS IN THE MORNING AND ONE TABLET 30 MINUTES BEFORE DINNER)
     Dates: start: 2018

REACTIONS (2)
  - Drug effective for unapproved indication [Unknown]
  - Off label use [Unknown]

NARRATIVE: CASE EVENT DATE: 201907
